FAERS Safety Report 13509252 (Version 2)
Quarter: 2017Q3

REPORT INFORMATION
  Report Type: Report from Study
  Country: None (occurrence: US)
  Receive Date: 20170503
  Receipt Date: 20170801
  Transmission Date: 20171127
  Serious: Yes (Hospitalization, Other)
  Sender: FDA-Public Use
  Company Number: US-ABBVIE-17K-163-1957300-00

PATIENT
  Age: 41 Year
  Sex: Female

DRUGS (1)
  1. HUMIRA [Suspect]
     Active Substance: ADALIMUMAB
     Indication: COLITIS ULCERATIVE
     Route: 058
     Dates: start: 20150615

REACTIONS (4)
  - Lung disorder [Recovering/Resolving]
  - Pneumothorax [Recovered/Resolved]
  - Colitis ulcerative [Unknown]
  - Legionella infection [Recovered/Resolved]

NARRATIVE: CASE EVENT DATE: 20170408
